FAERS Safety Report 8386634-0 (Version None)
Quarter: 2012Q2

REPORT INFORMATION
  Report Type: 
  Country: None (occurrence: None)
  Receive Date: 20120523
  Receipt Date: 20120523
  Transmission Date: 20120825
  Serious: Yes (Other)
  Sender: FDA-Public Use
  Company Number: None

PATIENT
  Age: 32 Year
  Sex: Female
  Weight: 61.2356 kg

DRUGS (2)
  1. CYCLOSPORINE [Suspect]
     Indication: LEUKAEMIA
     Dosage: 2 A DAY 100MG PO
     Route: 048
     Dates: start: 20091101, end: 20091201
  2. PROGRAF [Suspect]
     Indication: LEUKAEMIA
     Dosage: 2 A DAY 100MG PO
     Route: 048
     Dates: start: 20110730, end: 20111103

REACTIONS (7)
  - OEDEMA PERIPHERAL [None]
  - ARTHRALGIA [None]
  - JOINT SWELLING [None]
  - RASH [None]
  - SWELLING [None]
  - BRAIN INJURY [None]
  - FAECES DISCOLOURED [None]
